FAERS Safety Report 8468179-2 (Version None)
Quarter: 2012Q2

REPORT INFORMATION
  Report Type: 
  Country: None (occurrence: None)
  Receive Date: 20120626
  Receipt Date: 20120615
  Transmission Date: 20120825
  Serious: Yes (Hospitalization)
  Sender: FDA-Public Use
  Company Number: US-ROCHE-1077714

PATIENT
  Sex: Female
  Weight: 57.204 kg

DRUGS (11)
  1. TEMSIROLIMUS [Suspect]
     Indication: RENAL CELL CARCINOMA
     Route: 042
     Dates: start: 20120501, end: 20120611
  2. ATIVAN [Concomitant]
  3. UREA CREAM [Concomitant]
  4. BACTRIM [Concomitant]
  5. LEVOTHYROXINE SODIUM [Concomitant]
  6. OMEPRAZOLE [Concomitant]
  7. ZOFRAN [Concomitant]
  8. ACETAMINOPHEN [Concomitant]
     Indication: PAIN
     Route: 048
  9. AVASTIN [Suspect]
     Indication: RENAL CELL CARCINOMA
     Route: 042
     Dates: start: 20120501, end: 20120611
  10. BENZONATATE [Concomitant]
  11. OXYCODONE HCL [Concomitant]
     Indication: PAIN
     Route: 048

REACTIONS (3)
  - PNEUMOTHORAX [None]
  - PLEURITIC PAIN [None]
  - DYSPNOEA [None]
